FAERS Safety Report 4443643-1 (Version None)
Quarter: 2004Q3

REPORT INFORMATION
  Report Type: 
  Country: None (occurrence: None)
  Receive Date: 20040903
  Receipt Date: 20040903
  Transmission Date: 20050211
  Serious: Yes (Hospitalization)
  Sender: FDA-Public Use
  Company Number: None

PATIENT
  Age: 35 Year
  Sex: Female
  Weight: 56.6996 kg

DRUGS (2)
  1. REMICADE [Suspect]
  2. LEVOXYL [Concomitant]

REACTIONS (4)
  - ANAEMIA [None]
  - BRADYCARDIA [None]
  - RASH [None]
  - THROMBOCYTOPENIA [None]
